FAERS Safety Report 4462734-2 (Version None)
Quarter: 2004Q3

REPORT INFORMATION
  Report Type: 
  Country: None (occurrence: None)
  Receive Date: 20040930
  Receipt Date: 20040920
  Transmission Date: 20050211
  Serious: Yes (Death)
  Sender: FDA-Public Use
  Company Number: NL-JNJFOC-20040907011

PATIENT
  Age: 9 Year
  Sex: Female

DRUGS (5)
  1. REMICADE [Suspect]
     Route: 042
  2. ENBREL [Suspect]
  3. ENBREL [Suspect]
  4. METHOTREXATE [Concomitant]
  5. METHYLPREDNISOL [Concomitant]

REACTIONS (5)
  - CARDIAC ARREST [None]
  - JOINT TUBERCULOSIS [None]
  - LUNG INFECTION [None]
  - OPPORTUNISTIC INFECTION [None]
  - RESPIRATORY FAILURE [None]
